FAERS Safety Report 24303543 (Version 1)
Quarter: 2024Q3

REPORT INFORMATION
  Report Type: Report from Study
  Country: US (occurrence: US)
  Receive Date: 20240910
  Receipt Date: 20240910
  Transmission Date: 20241017
  Serious: Yes (Hospitalization)
  Sender: JOHNSON AND JOHNSON
  Company Number: US-JNJFOC-20240902849

PATIENT

DRUGS (1)
  1. TALVEY [Suspect]
     Active Substance: TALQUETAMAB-TGVS
     Indication: Plasma cell myeloma refractory
     Dosage: INDEX DOSE (3MG/1.5 ML) BETWEEN  9-AUG-2023 AND  7-MAR-2024
     Route: 065

REACTIONS (1)
  - Cytokine release syndrome [Unknown]
